FAERS Safety Report 15122019 (Version 1)
Quarter: 2018Q3

REPORT INFORMATION
  Report Type: Spontaneous
  Country: TR (occurrence: TR)
  Receive Date: 20180709
  Receipt Date: 20180709
  Transmission Date: 20181010
  Serious: Yes (Hospitalization)
  Sender: FDA-Public Use
  Company Number: TR-MYLANLABS-2018M1049118

PATIENT
  Age: 28 Year
  Sex: Female

DRUGS (1)
  1. DISULFIRAM. [Suspect]
     Active Substance: DISULFIRAM
     Indication: PRODUCT USED FOR UNKNOWN INDICATION
     Dosage: 12.500 MG [SIC] INGESTED 1 HOUR AFTER ALCOHOL INTAKE
     Route: 048

REACTIONS (4)
  - Alcohol interaction [Recovering/Resolving]
  - Ischaemic cerebral infarction [Recovering/Resolving]
  - Facial paralysis [Recovering/Resolving]
  - Suicide attempt [Recovering/Resolving]
